FAERS Safety Report 21661716 (Version 1)
Quarter: 2022Q4

REPORT INFORMATION
  Report Type: Spontaneous
  Country: FR (occurrence: FR)
  Receive Date: 20221130
  Receipt Date: 20221130
  Transmission Date: 20230112
  Serious: Yes (Other)
  Sender: FDA-Public Use
  Company Number: None

PATIENT
  Age: 76 Year
  Sex: Male
  Weight: 81 kg

DRUGS (16)
  1. AMLODIPINE [Suspect]
     Active Substance: AMLODIPINE BESYLATE
     Indication: Hypertension
  2. ATORVASTATIN [Suspect]
     Active Substance: ATORVASTATIN
     Indication: Dyslipidaemia
     Dates: start: 202108
  3. CLOPIDOGREL [Suspect]
     Active Substance: CLOPIDOGREL BISULFATE
     Indication: Cardiovascular event prophylaxis
  4. FUROSEMIDE [Suspect]
     Active Substance: FUROSEMIDE
     Indication: Hypertension
     Dates: start: 202101
  5. BISOPROLOL FUMARATE [Suspect]
     Active Substance: BISOPROLOL FUMARATE
     Indication: Hypertension
  6. ACETAMINOPHEN [Suspect]
     Active Substance: ACETAMINOPHEN
     Indication: Pain
     Dosage: AS NECESSARY
     Dates: start: 202101
  7. LEVOTHYROXINE [Suspect]
     Active Substance: LEVOTHYROXINE
     Indication: Thyroid disorder
     Dosage: STRENGTH : 50 MICROGRAMS, SCORED TABLET
     Dates: start: 202106
  8. ROMIDEPSIN [Suspect]
     Active Substance: ROMIDEPSIN
     Indication: Cutaneous T-cell lymphoma
     Dosage: STRENGTH : 10MG, POWDER FOR SOLUTION FOR INFUSION
     Dates: start: 20220221
  9. IPRATROPIUM BROMIDE\FENOTEROL HYDROBROMIDE [Suspect]
     Active Substance: FENOTEROL HYDROBROMIDE\IPRATROPIUM BROMIDE
     Indication: Chronic obstructive pulmonary disease
     Dosage: STRENGTH : 100 MICROGRAMS/40 MICROGRAMS, POWDER FOR INHALATION IN CAPSULE FORM
     Dates: start: 202112
  10. HYDROCORTISONE [Suspect]
     Active Substance: HYDROCORTISONE
     Indication: Cortisol decreased
     Dates: start: 202111
  11. JANUVIA [Suspect]
     Active Substance: SITAGLIPTIN PHOSPHATE
     Indication: Type 2 diabetes mellitus
  12. PENICILLIN V [Suspect]
     Active Substance: PENICILLIN V
     Indication: Antibiotic prophylaxis
     Dosage: STRENGTH : N 1,000,000 IU/10 ML, ORAL SUSPENSION
     Dates: start: 202112
  13. CHOLECALCIFEROL\SODIUM FLUORIDE [Suspect]
     Active Substance: CHOLECALCIFEROL\SODIUM FLUORIDE
     Indication: Vitamin D deficiency
     Dosage: STRENGTH : 50,000 IU, ORAL SOLUTION IN AMPOULE
  14. POTASSIUM CHLORIDE [Suspect]
     Active Substance: POTASSIUM CHLORIDE
     Indication: Hypokalaemia
     Dosage: STRENGTH : CAPSULE
     Dates: start: 202101
  15. COBALAMIN [Suspect]
     Active Substance: COBALAMIN
     Indication: Vitamin B12 deficiency
     Dates: start: 202112
  16. VENLAFAXINE [Suspect]
     Active Substance: VENLAFAXINE HYDROCHLORIDE
     Indication: Depression
     Dates: start: 202101

REACTIONS (1)
  - Mouth ulceration [Recovering/Resolving]
